FAERS Safety Report 12260711 (Version 1)
Quarter: 2016Q2

REPORT INFORMATION
  Report Type: Spontaneous
  Country: US (occurrence: US)
  Receive Date: 20160412
  Receipt Date: 20160412
  Transmission Date: 20160815
  Serious: Yes (Other)
  Sender: FDA-Public Use
  Company Number: US-BAYER-2016-064247

PATIENT
  Sex: Male

DRUGS (1)
  1. XOFIGO [Suspect]
     Active Substance: RADIUM RA-223 DICHLORIDE
     Dosage: UNK
     Dates: start: 20160325

REACTIONS (7)
  - Vomiting [None]
  - Pain [None]
  - Decreased appetite [None]
  - Malaise [None]
  - Heart rate increased [None]
  - Nausea [None]
  - Blood pressure diastolic increased [None]
